FAERS Safety Report 9752967 (Version 1)
Quarter: 2013Q4

REPORT INFORMATION
  Report Type: Spontaneous
  Country: US (occurrence: US)
  Receive Date: 20131213
  Receipt Date: 20131213
  Transmission Date: 20140711
  Serious: Yes (Other)
  Sender: FDA-Public Use
  Company Number: US-MALLINCKRODT-T201305066

PATIENT
  Age: 55 Year
  Sex: Male

DRUGS (5)
  1. ROXICODONE [Suspect]
     Indication: PAIN
     Route: 065
  2. CYCLOBENZAPRINE [Suspect]
     Indication: PAIN
     Dosage: 10 MG, TID
  3. OXYCODONE HCL CONTROLLED RELEASE TABLETS [Suspect]
     Indication: PAIN
     Dosage: UNK
     Route: 065
  4. ERTAPENEM [Concomitant]
     Indication: INTERVERTEBRAL DISCITIS
  5. DAPTOMYCIN [Concomitant]
     Indication: INTERVERTEBRAL DISCITIS

REACTIONS (1)
  - Serotonin syndrome [Recovered/Resolved]
